FAERS Safety Report 8911559 (Version 1)
Quarter: 2012Q4

REPORT INFORMATION
  Report Type: 
  Country: US (occurrence: US)
  Receive Date: 20121116
  Receipt Date: 20121116
  Transmission Date: 20130627
  Serious: No
  Sender: FDA-Public Use
  Company Number: US-PFIZER INC-2012286856

PATIENT
  Age: 81 Year
  Sex: Female
  Weight: 77 kg

DRUGS (3)
  1. LYRICA [Suspect]
     Indication: DIABETIC FOOT
     Dosage: 50 mg, daily
  2. LYRICA [Suspect]
     Dosage: 50 mg, 3x/day
  3. LYRICA [Suspect]
     Dosage: 50 mg, UNK

REACTIONS (2)
  - Skin papilloma [Not Recovered/Not Resolved]
  - Inappropriate schedule of drug administration [Unknown]
